FAERS Safety Report 18873050 (Version 1)
Quarter: 2021Q1

REPORT INFORMATION
  Report Type: Spontaneous
  Country: FR (occurrence: FR)
  Receive Date: 20210210
  Receipt Date: 20210210
  Transmission Date: 20210420
  Serious: Yes (Hospitalization)
  Sender: FDA-Public Use
  Company Number: FR-009507513-2102FRA003025

PATIENT
  Age: 89 Year
  Sex: Female
  Weight: 78.5 kg

DRUGS (11)
  1. LYRICA [Concomitant]
     Active Substance: PREGABALIN
  2. LAMALINE [Concomitant]
  3. RAMIPRIL. [Concomitant]
     Active Substance: RAMIPRIL
  4. LEVOTHYROX [Concomitant]
     Active Substance: LEVOTHYROXINE
  5. KEYTRUDA [Suspect]
     Active Substance: PEMBROLIZUMAB
     Indication: METASTATIC MALIGNANT MELANOMA
     Dosage: 154 MILLIGRAM, CYCLICAL
     Route: 041
     Dates: start: 20201118, end: 20210122
  6. TAHOR [Concomitant]
     Active Substance: ATORVASTATIN CALCIUM
  7. EFFEXOR [Concomitant]
     Active Substance: VENLAFAXINE HYDROCHLORIDE
  8. PANTOPRAZOLE [Concomitant]
     Active Substance: PANTOPRAZOLE
  9. LERCAN [Concomitant]
     Active Substance: LERCANIDIPINE
     Route: 048
  10. SERESTA [Concomitant]
     Active Substance: OXAZEPAM
     Route: 048
  11. LAROXYL [Concomitant]
     Active Substance: AMITRIPTYLINE HYDROCHLORIDE

REACTIONS (1)
  - Neuropathy peripheral [Not Recovered/Not Resolved]

NARRATIVE: CASE EVENT DATE: 202012
